FAERS Safety Report 5501629-X (Version None)
Quarter: 2007Q4

REPORT INFORMATION
  Report Type: 
  Country: None (occurrence: None)
  Receive Date: 20071026
  Receipt Date: 20071012
  Transmission Date: 20080405
  Serious: Yes (Other)
  Sender: FDA-Public Use
  Company Number: 162910ISR

PATIENT
  Age: 2 Year
  Sex: Female

DRUGS (2)
  1. CARBOPLATIN [Suspect]
     Indication: RETINOBLASTOMA BILATERAL
     Dosage: (160 MG/M2, CYCLICAL) PARENTERAL; (4000 MG/M2, CYCLICAL) PARENTERAL
     Route: 051
  2. ETOPOSIDE [Suspect]
     Indication: RETINOBLASTOMA BILATERAL
     Dosage: (100 MG/M2, CYCLICAL) PARENTERAL; (2500 MG/M2, CYCLICAL) PARENTERAL
     Route: 051

REACTIONS (1)
  - ACUTE MYELOID LEUKAEMIA [None]
